FAERS Safety Report 9685332 (Version 1)
Quarter: 2013Q4

REPORT INFORMATION
  Report Type: Spontaneous
  Country: US (occurrence: None)
  Receive Date: 20131112
  Receipt Date: 20131112
  Transmission Date: 20140711
  Serious: No
  Sender: FDA-Public Use
  Company Number: None

PATIENT
  Age: 68 Year
  Sex: Male
  Weight: 136.08 kg

DRUGS (11)
  1. GLIPIZIDE XL [Suspect]
     Indication: GLYCOSYLATED HAEMOGLOBIN INCREASED
     Route: 048
     Dates: start: 20130818, end: 20131027
  2. LIPTOR [Concomitant]
  3. MEDFORMIN ER [Concomitant]
  4. LISINOPRILL/HCTZ [Concomitant]
  5. COSOPT [Concomitant]
  6. XALATAN [Concomitant]
  7. NAPOROXEN [Concomitant]
  8. PERCOCET [Concomitant]
  9. ASPIRIN [Concomitant]
  10. TYLENOL [Concomitant]
  11. FISH OIL [Concomitant]

REACTIONS (1)
  - Diarrhoea [None]
